FAERS Safety Report 8397427-2 (Version None)
Quarter: 2012Q2

REPORT INFORMATION
  Report Type: 
  Country: None (occurrence: None)
  Receive Date: 20120323
  Receipt Date: 20110311
  Transmission Date: 20120825
  Serious: Yes (Hospitalization)
  Sender: FDA-Public Use
  Company Number: 163-21880-11031723

PATIENT
  Age: 71 Year
  Sex: Male

DRUGS (14)
  1. WARFARIN SODIUM [Concomitant]
  2. CALCIUM CARBONATE [Concomitant]
  3. FLOMAX [Concomitant]
  4. POTASSIUM CHLORIDE [Concomitant]
  5. ACETAMINOPHEN [Concomitant]
  6. MULTIVITAMIN [Concomitant]
  7. DEXAMETHASONE [Concomitant]
  8. VITAMIN B COMPLEX (2-KOMPLEX ^LECIVA^) [Concomitant]
  9. TYLENOL #3 (PARACETAMOL) [Concomitant]
  10. REVLIMID [Suspect]
     Indication: MULTIPLE MYELOMA
     Dosage: 5 MG, 1 IN 1 D, PO, 10-15-25NG, DAILY, PO, 20 MG, DAILY X 21, PO, 15 MG, DAILY, PO
     Route: 048
     Dates: start: 20080501
  11. REVLIMID [Suspect]
     Indication: MULTIPLE MYELOMA
     Dosage: 5 MG, 1 IN 1 D, PO, 10-15-25NG, DAILY, PO, 20 MG, DAILY X 21, PO, 15 MG, DAILY, PO
     Route: 048
     Dates: start: 20110201
  12. REVLIMID [Suspect]
     Indication: MULTIPLE MYELOMA
     Dosage: 5 MG, 1 IN 1 D, PO, 10-15-25NG, DAILY, PO, 20 MG, DAILY X 21, PO, 15 MG, DAILY, PO
     Route: 048
     Dates: start: 20060801, end: 20080101
  13. REVLIMID [Suspect]
     Indication: MULTIPLE MYELOMA
     Dosage: 5 MG, 1 IN 1 D, PO, 10-15-25NG, DAILY, PO, 20 MG, DAILY X 21, PO, 15 MG, DAILY, PO
     Route: 048
     Dates: start: 20110301
  14. ZOMETA [Concomitant]

REACTIONS (1)
  - UPPER RESPIRATORY TRACT INFECTION [None]
